FAERS Safety Report 4565070-9 (Version None)
Quarter: 2005Q1

REPORT INFORMATION
  Report Type: 
  Country: None (occurrence: None)
  Receive Date: 20050131
  Receipt Date: 20040719
  Transmission Date: 20050727
  Serious: Yes (Hospitalization)
  Sender: FDA-Public Use
  Company Number: US-BRISTOL-MYERS SQUIBB COMPANY-12644571

PATIENT
  Age: 72 Year
  Sex: Female

DRUGS (14)
  1. REYATAZ [Suspect]
     Indication: HIV INFECTION
     Route: 048
  2. VIREAD [Concomitant]
     Dosage: ONCE DAILY
  3. EPIVIR [Concomitant]
     Dosage: ONCE DAILY
  4. RITONAVIR [Concomitant]
     Dosage: ONCE DAILY
  5. ZIAGEN [Concomitant]
     Dosage: ONCE DAILY
  6. NORVIR [Concomitant]
  7. MARINOL [Concomitant]
  8. LISINOPRIL [Concomitant]
     Indication: HYPERTENSION
  9. HUMULIN 70/30 [Concomitant]
     Indication: DIABETES MELLITUS
  10. GLIPIZIDE [Concomitant]
     Indication: DIABETES MELLITUS
  11. CLINDAMYCIN HCL [Concomitant]
     Route: 048
  12. NIZORAL CREAM [Concomitant]
  13. PERCOCET [Concomitant]
  14. NAPROXEN [Concomitant]

REACTIONS (9)
  - ATRIOVENTRICULAR BLOCK COMPLETE [None]
  - BLOOD MAGNESIUM INCREASED [None]
  - BLOOD POTASSIUM INCREASED [None]
  - BLOOD PRESSURE DECREASED [None]
  - BLOOD SODIUM DECREASED [None]
  - BLOOD UREA INCREASED [None]
  - DIZZINESS [None]
  - SINUS ARREST [None]
  - SINUS BRADYCARDIA [None]
